FAERS Safety Report 14689034 (Version 8)
Quarter: 2022Q4

REPORT INFORMATION
  Report Type: Spontaneous
  Country: DE (occurrence: DE)
  Receive Date: 20180328
  Receipt Date: 20221102
  Transmission Date: 20230113
  Serious: Yes (Other)
  Sender: FDA-Public Use
  Company Number: DE-AUROBINDO-AUR-APL-2018-016889

PATIENT
  Age: 31 Year
  Sex: Male
  Weight: 76 kg

DRUGS (32)
  1. RIBAVIRIN [Suspect]
     Active Substance: RIBAVIRIN
     Indication: Chronic hepatitis C
     Dosage: 1000 MG, QD, MOST RECENT DOSE ON 02/AUG/2012
     Route: 048
     Dates: start: 20120524, end: 20120802
  2. RIBAVIRIN [Suspect]
     Active Substance: RIBAVIRIN
     Dosage: 800 MG, QD,MOST RECENT DOSE OF 25/APR/2013
     Route: 048
     Dates: start: 20120803, end: 20130425
  3. RIBAVIRIN [Suspect]
     Active Substance: RIBAVIRIN
     Dosage: 800 MILLIGRAM, ONCE A DAY
     Route: 048
     Dates: start: 20120803, end: 20130425
  4. RIBAVIRIN [Suspect]
     Active Substance: RIBAVIRIN
     Dosage: 1000 MILLIGRAM, ONCE A DAY
     Route: 048
     Dates: start: 20120524, end: 20120802
  5. RIBAVIRIN [Suspect]
     Active Substance: RIBAVIRIN
     Dosage: CUMULATIVE DOSE TO FIRST REACTION: 103473.69 MG
     Route: 048
     Dates: start: 20120803, end: 20130425
  6. TELAPREVIR [Suspect]
     Active Substance: TELAPREVIR
     Indication: Chronic hepatitis C
     Dosage: 2250 MG, QD, MOST RECENT DOSE OF 16/AUG/2012
     Route: 048
     Dates: start: 20120524
  7. PEGASYS [Suspect]
     Active Substance: PEGINTERFERON ALFA-2A
     Indication: Chronic hepatitis C
     Dosage: 180 G, QWK
     Route: 058
     Dates: start: 20120524
  8. NORVIR [Suspect]
     Active Substance: RITONAVIR
     Indication: HIV infection
     Dosage: 100 MG, QD MOST RECENT DOSE OF 20/JUL/2016, CUMULATIVE DOSE TO FIRST REACTION: 98658.76 MG
     Route: 048
     Dates: start: 20100101
  9. NORVIR [Suspect]
     Active Substance: RITONAVIR
     Dosage: 100 MILLIGRAM, ONCE A DAY
     Route: 048
     Dates: start: 2013
  10. NORVIR [Suspect]
     Active Substance: RITONAVIR
     Dosage: 20 MILLIGRAM, ONCE A DAY
     Route: 048
     Dates: start: 2013
  11. TRUVADA [Suspect]
     Active Substance: EMTRICITABINE\TENOFOVIR DISOPROXIL FUMARATE
     Indication: HIV infection
     Dosage: 200 MG, QD, MOST RECENT DOSE OF 20/JUL/2016, CUMULATIVE DOSE TO FIRST REACTION: 174926.88 MG
     Route: 048
     Dates: start: 20100101
  12. REYATAZ [Suspect]
     Active Substance: ATAZANAVIR SULFATE
     Indication: HIV infection
     Dosage: 1000 MILLIGRAM, ONCE A DAY
     Route: 048
     Dates: start: 20120524, end: 20120802
  13. REYATAZ [Suspect]
     Active Substance: ATAZANAVIR SULFATE
     Dosage: 800 MILLIGRAM, ONCE A DAY
     Route: 048
     Dates: start: 20120803, end: 20130425
  14. REYATAZ [Suspect]
     Active Substance: ATAZANAVIR SULFATE
     Dosage: 300 MILLIGRAM, DAILY
     Route: 048
     Dates: start: 20100101
  15. COPEGUS [Suspect]
     Active Substance: RIBAVIRIN
     Indication: Chronic hepatitis C
     Dosage: 800 MILLIGRAM, ONCE A DAY(CUMULATIVE DOSE TO FIRST REACTION: 103473.69 MG)
     Route: 048
     Dates: start: 20120803, end: 20130425
  16. COPEGUS [Suspect]
     Active Substance: RIBAVIRIN
     Dosage: 1000 MILLIGRAM, ONCE A DAY(CUMULATIVE DOSE TO FIRST REACTION: 103473.69 MG)
     Route: 048
     Dates: start: 20120524, end: 20120802
  17. PEGINTERFERON ALFA-2A [Suspect]
     Active Substance: PEGINTERFERON ALFA-2A
     Indication: Chronic hepatitis C
     Dosage: 180 MICROGRAM, 1 WEEK
     Route: 058
  18. BETAGALEN [Concomitant]
     Indication: Hepatitis C
     Dosage: UNK
     Route: 065
     Dates: start: 20120605
  19. SUBUTEX [Concomitant]
     Active Substance: BUPRENORPHINE HYDROCHLORIDE
     Indication: Product used for unknown indication
     Dosage: 4 MILLIGRAM
     Route: 048
  20. CITALOPRAM [Concomitant]
     Active Substance: CITALOPRAM HYDROBROMIDE
     Indication: Drug dependence
     Dosage: 20 MILLIGRAM
     Route: 065
     Dates: start: 20120621, end: 20130601
  21. CITALOPRAM [Concomitant]
     Active Substance: CITALOPRAM HYDROBROMIDE
     Dosage: 40 MILLIGRAM
     Route: 065
     Dates: start: 20120621, end: 20130601
  22. CITALOPRAM [Concomitant]
     Active Substance: CITALOPRAM HYDROBROMIDE
     Dosage: 40 MILLIGRAM
     Route: 065
     Dates: start: 20121220
  23. AZITHROMYCIN [Concomitant]
     Active Substance: AZITHROMYCIN
     Indication: Product used for unknown indication
     Dosage: 500 MILLIGRAM, ONCE A DAY
     Route: 065
     Dates: start: 20130603, end: 20130605
  24. AZITHROMYCIN [Concomitant]
     Active Substance: AZITHROMYCIN
     Dosage: 500 MILLIGRAM
     Route: 065
     Dates: start: 20130605
  25. ACETYLCYSTEINE [Concomitant]
     Active Substance: ACETYLCYSTEINE
     Indication: Product used for unknown indication
     Dosage: 600 MILLIGRAM
     Route: 065
     Dates: start: 20130314
  26. ACETYLCYSTEINE [Concomitant]
     Active Substance: ACETYLCYSTEINE
     Dosage: 600 MILLIGRAM
     Route: 065
  27. ACETYLCYSTEINE [Concomitant]
     Active Substance: ACETYLCYSTEINE
     Dosage: 600 MILLIGRAM, AS NECESSARY
     Route: 065
     Dates: start: 20130314
  28. ACETYLCYSTEINE [Concomitant]
     Active Substance: ACETYLCYSTEINE
     Dosage: UNK, AS NECESSARY
     Route: 065
  29. METAMIZOL [Concomitant]
     Active Substance: METAMIZOLE SODIUM
     Indication: Product used for unknown indication
     Dosage: UNK
     Route: 065
     Dates: start: 20121221
  30. METAMIZOLE SODIUM [Concomitant]
     Active Substance: METAMIZOLE SODIUM
     Indication: Product used for unknown indication
     Dosage: UNK, AS NECESSARY
     Route: 048
     Dates: start: 20121221
  31. AZITHROMYCIN [Concomitant]
     Active Substance: AZITHROMYCIN
     Indication: Product used for unknown indication
     Dosage: 500 MILLIGRAM, ONCE A DAY
     Route: 065
     Dates: start: 20130603, end: 20130605
  32. METAMIZOLE SODIUM [Concomitant]
     Active Substance: METAMIZOLE SODIUM
     Indication: Product used for unknown indication
     Dosage: UNK
     Route: 048
     Dates: start: 20121221

REACTIONS (23)
  - Vertigo [Recovered/Resolved]
  - Anaemia [Not Recovered/Not Resolved]
  - Fatigue [Recovered/Resolved]
  - Dizziness [Recovered/Resolved]
  - Drug dependence [Not Recovered/Not Resolved]
  - Wrong dose [Recovered/Resolved]
  - Restlessness [Recovered/Resolved]
  - Depressed mood [Not Recovered/Not Resolved]
  - Impaired healing [Recovered/Resolved]
  - Influenza like illness [Recovered/Resolved]
  - Oral herpes [Recovered/Resolved]
  - Dry skin [Not Recovered/Not Resolved]
  - Taste disorder [Not Recovered/Not Resolved]
  - Headache [Recovered/Resolved]
  - Nausea [Recovered/Resolved]
  - Sinusitis [Recovered/Resolved]
  - Incorrect dose administered [Unknown]
  - Alanine aminotransferase increased [Not Recovered/Not Resolved]
  - Laboratory test abnormal [Unknown]
  - Withdrawal syndrome [Not Recovered/Not Resolved]
  - Pruritus [Recovered/Resolved]
  - Skin irritation [Not Recovered/Not Resolved]
  - Nasopharyngitis [Recovered/Resolved]

NARRATIVE: CASE EVENT DATE: 20120524
